FAERS Safety Report 6964979-6 (Version None)
Quarter: 2010Q3

REPORT INFORMATION
  Report Type: 
  Country: None (occurrence: None)
  Receive Date: 20100903
  Receipt Date: 20100823
  Transmission Date: 20110219
  Serious: No
  Sender: FDA-Public Use
  Company Number: US-B.I. PHARMACEUTICALS,INC./RIDGEFIELD-2010-BP-07848BP

PATIENT
  Age: 79 Year
  Sex: Male
  Weight: 73.5 kg

DRUGS (7)
  1. CATAPRES-TTS-1 [Suspect]
     Indication: HYPERTENSION
     Dosage: 0.3 MG
     Route: 061
     Dates: start: 20100219, end: 20100730
  2. FUROSEMIDE [Concomitant]
     Dosage: 10 MG
  3. COQ10 ENXYME [Concomitant]
     Dosage: 200 MG
     Dates: start: 20070301
  4. MULTI-VITAMIN [Concomitant]
     Dates: start: 20070301
  5. ASPIRIN [Concomitant]
     Dosage: 81 MG
     Dates: start: 20070301
  6. LASIX [Concomitant]
     Dosage: 10 MG
     Dates: start: 20070301
  7. CLONIDINE [Concomitant]
     Indication: BLOOD PRESSURE
     Dates: start: 20070301

REACTIONS (7)
  - ANGINA PECTORIS [None]
  - APPLICATION SITE DISCOLOURATION [None]
  - APPLICATION SITE ERYTHEMA [None]
  - APPLICATION SITE PRURITUS [None]
  - APPLICATION SITE RASH [None]
  - DERMATITIS CONTACT [None]
  - SCAB [None]
